FAERS Safety Report 4350644-0 (Version None)
Quarter: 2004Q2

REPORT INFORMATION
  Report Type: 
  Country: None (occurrence: None)
  Receive Date: 20040427
  Receipt Date: 20040413
  Transmission Date: 20050107
  Serious: Yes (Hospitalization, Disabling)
  Sender: FDA-Public Use
  Company Number: A02200401295

PATIENT
  Age: 74 Year
  Sex: Male

DRUGS (6)
  1. KERLONE [Suspect]
     Dosage: 20 MG, OD, ORAL
     Route: 048
  2. NEO-MERCAZOLE TAB [Suspect]
     Dosage: 1 UNIT BID, ORAL
     Route: 048
     Dates: start: 20040201, end: 20040316
  3. PREVISCAN (FLUINDIONE) TABLET - 20 MG [Suspect]
     Dosage: 15 MG OD, ORAL
     Route: 048
  4. ECAZIDE (CAPTOPRIL/HYDRLCHLOROTHIAZIDE) - TABELT - 75 MG [Suspect]
     Dosage: 75 MG OD, ORAL
     Route: 048
  5. DIGOXIN [Suspect]
     Dosage: 0.125 MG OD, ORAL
     Route: 048
  6. CAPTOPRIL [Suspect]
     Dosage: 50 MG OD, ORAL
     Route: 048

REACTIONS (24)
  - AGRANULOCYTOSIS [None]
  - ANTI-PROTHROMBIN ANTIBODY POSITIVE [None]
  - ASTERIXIS [None]
  - BALANCE DISORDER [None]
  - BLISTER [None]
  - BLOOD BILIRUBIN INCREASED [None]
  - C-REACTIVE PROTEIN INCREASED [None]
  - CEREBELLAR SYNDROME [None]
  - COAGULATION FACTOR XII LEVEL DECREASED [None]
  - CYTOMEGALOVIRUS TEST POSITIVE [None]
  - ERYSIPELAS [None]
  - ERYTHEMA [None]
  - EYE PAIN [None]
  - EYE REDNESS [None]
  - INDURATION [None]
  - INFECTION [None]
  - NEUTROPHIL COUNT ABNORMAL [None]
  - OEDEMA PERIPHERAL [None]
  - ORTHOSTATIC HYPOTENSION [None]
  - PHARYNGITIS [None]
  - PURULENT DISCHARGE [None]
  - PYREXIA [None]
  - SKIN INFECTION [None]
  - WHITE BLOOD CELL COUNT DECREASED [None]
